FAERS Safety Report 5453832-5 (Version None)
Quarter: 2007Q3

REPORT INFORMATION
  Report Type: 
  Country: None (occurrence: None)
  Receive Date: 20070917
  Receipt Date: 20070912
  Transmission Date: 20080115
  Serious: Yes (Hospitalization)
  Sender: FDA-Public Use
  Company Number: A0681478A

PATIENT
  Age: 85 Year
  Sex: Female

DRUGS (9)
  1. AVANDIA [Suspect]
     Route: 048
     Dates: start: 20060301, end: 20070811
  2. GLUCOPHAGE [Concomitant]
  3. GLYBURIDE [Concomitant]
  4. ZOCOR [Concomitant]
  5. METOPROLOL SUCCINATE [Concomitant]
  6. COZAAR [Concomitant]
  7. HYDROCHLOROTHIAZIDE [Concomitant]
  8. ASPIRIN [Concomitant]
  9. TARCEVA [Concomitant]

REACTIONS (4)
  - CHEST PAIN [None]
  - LUNG NEOPLASM MALIGNANT [None]
  - PLEURAL EFFUSION [None]
  - WEIGHT INCREASED [None]
